FAERS Safety Report 10771489 (Version 3)
Quarter: 2020Q4

REPORT INFORMATION
  Report Type: Report from Study
  Country: US (occurrence: US)
  Receive Date: 20150206
  Receipt Date: 20201025
  Transmission Date: 20210113
  Serious: Yes (Death, Hospitalization)
  Sender: FDA-Public Use
  Company Number: US-ARIAD-2014US003987

PATIENT

DRUGS (4)
  1. PONATINIB [Suspect]
     Active Substance: PONATINIB
     Dosage: 60 MG, QD
     Route: 048
  2. PONATINIB [Suspect]
     Active Substance: PONATINIB
     Indication: CHRONIC MYELOID LEUKAEMIA
     Dosage: 45 MG, QD
     Route: 048
  3. PONATINIB [Suspect]
     Active Substance: PONATINIB
     Dosage: 15 MG, QD
     Route: 048
  4. PONATINIB [Suspect]
     Active Substance: PONATINIB
     Dosage: 45 MG, QOD
     Route: 048
     Dates: end: 20140814

REACTIONS (17)
  - Bone marrow transplant [Not Recovered/Not Resolved]
  - Abdominal pain [Unknown]
  - Off label use [Unknown]
  - Constipation [Not Recovered/Not Resolved]
  - Headache [Unknown]
  - Haemoglobin decreased [Unknown]
  - Urine odour abnormal [Unknown]
  - Pain [Unknown]
  - Death [Fatal]
  - Groin infection [Unknown]
  - Cough [Unknown]
  - Pain in extremity [Unknown]
  - Pyrexia [Unknown]
  - Neutrophil count decreased [Unknown]
  - Dysuria [Unknown]
  - Abdominal discomfort [Unknown]
  - Chest pain [Unknown]

NARRATIVE: CASE EVENT DATE: 20140407
